FAERS Safety Report 8507047-4 (Version None)
Quarter: 2012Q3

REPORT INFORMATION
  Report Type: 
  Country: None (occurrence: None)
  Receive Date: 20120712
  Receipt Date: 20120709
  Transmission Date: 20120928
  Serious: Yes (Other)
  Sender: FDA-Public Use
  Company Number: BE-BAYER-2012-068157

PATIENT
  Age: 67 Year
  Sex: Male

DRUGS (3)
  1. ENALAPRIL MALEATE [Concomitant]
     Dosage: 20 MG, UNK
  2. ASPIRIN [Suspect]
     Dosage: 100MG
  3. SIMVASTATIN [Suspect]
     Dosage: 40 MG, UNK

REACTIONS (8)
  - GASTRITIS [None]
  - DYSPEPSIA [None]
  - WEIGHT DECREASED [None]
  - COLITIS ULCERATIVE [None]
  - GASTROOESOPHAGEAL REFLUX DISEASE [None]
  - COLITIS MICROSCOPIC [None]
  - DIARRHOEA INFECTIOUS [None]
  - DIARRHOEA [None]
